FAERS Safety Report 5016356-5 (Version None)
Quarter: 2006Q2

REPORT INFORMATION
  Report Type: 
  Country: None (occurrence: None)
  Receive Date: 20060426
  Receipt Date: 20051014
  Transmission Date: 20061013
  Serious: Yes (Hospitalization)
  Sender: FDA-Public Use
  Company Number: PHO-2005-034

PATIENT
  Sex: Male

DRUGS (1)
  1. PORFIMER SODIUM (PHOTOFRIN) [Suspect]
     Indication: BARRETT'S OESOPHAGUS
     Dosage: 2 MG/KG IV
     Route: 042

REACTIONS (1)
  - OESOPHAGEAL PERFORATION [None]
